FAERS Safety Report 6935838-X (Version None)
Quarter: 2010Q3

REPORT INFORMATION
  Report Type: 
  Country: None (occurrence: None)
  Receive Date: 20100823
  Receipt Date: 20100819
  Transmission Date: 20110219
  Serious: Yes (Death, Hospitalization, Other)
  Sender: FDA-Public Use
  Company Number: PHHY2009JP51850

PATIENT
  Sex: Male

DRUGS (13)
  1. DIOVAN [Suspect]
     Dosage: 80 MG, QD
     Route: 048
     Dates: start: 20071220, end: 20090818
  2. ZYRTEC [Concomitant]
     Dosage: 10 MG, UNK
     Route: 048
     Dates: start: 20071214, end: 20090818
  3. LANSOPRAZOLE [Concomitant]
     Dosage: 30 MG, UNK
     Route: 048
     Dates: start: 20071214, end: 20090818
  4. BERIZYM [Concomitant]
     Dosage: 3 G, UNK
     Route: 048
     Dates: start: 20071214, end: 20090818
  5. LAC B [Concomitant]
     Dosage: 3 G, UNK
     Route: 048
     Dates: start: 20071214, end: 20090818
  6. FLUTIDE DISKUS [Concomitant]
     Dosage: 200 UG, UNK
     Route: 048
     Dates: start: 20071214, end: 20090818
  7. MEPTIN [Concomitant]
     Dosage: UNK
     Dates: start: 20071214, end: 20090818
  8. THEOLONG [Concomitant]
     Dosage: 400 MG, UNK
     Route: 048
     Dates: start: 20080201, end: 20080206
  9. AMOBAN [Concomitant]
     Dosage: 7.5 MG, UNK
     Route: 048
     Dates: start: 20080701, end: 20090818
  10. EVIPROSTAT [Concomitant]
     Dosage: 3 DF, UNK
     Route: 048
     Dates: start: 20090225
  11. ALLELOCK [Concomitant]
     Dosage: 5 MG, UNK
     Route: 048
     Dates: start: 20090708, end: 20090818
  12. HARNAL [Concomitant]
     Dosage: 20 MG, UNK
     Route: 048
     Dates: start: 20090818, end: 20090818
  13. LOXONIN [Concomitant]
     Dosage: 60 MG, UNK
     Route: 048
     Dates: start: 20090609, end: 20090818

REACTIONS (7)
  - BLOOD UREA DECREASED [None]
  - BLOOD URIC ACID INCREASED [None]
  - HYPOGLYCAEMIA [None]
  - INSOMNIA [None]
  - LOSS OF CONSCIOUSNESS [None]
  - NOCTURIA [None]
  - PNEUMONIA [None]
